FAERS Safety Report 9701657 (Version 1)
Quarter: 2013Q4

REPORT INFORMATION
  Report Type: Spontaneous
  Country: US (occurrence: US)
  Receive Date: 20131119
  Receipt Date: 20131119
  Transmission Date: 20140711
  Serious: No
  Sender: FDA-Public Use
  Company Number: US-ORACLE-2012S1000001

PATIENT
  Age: 49 Year
  Sex: Male
  Weight: 99.79 kg

DRUGS (4)
  1. KRYSTEXXA INJECTION [Suspect]
     Indication: GOUT
     Route: 042
     Dates: start: 201109
  2. COLCHICINE [Concomitant]
     Indication: GOUT
  3. METOPROLOL [Concomitant]
     Indication: HYPERTENSION
     Dates: start: 2000
  4. CRESTOR [Concomitant]
     Indication: BLOOD CHOLESTEROL INCREASED
     Dates: start: 2000

REACTIONS (1)
  - Gout [Not Recovered/Not Resolved]
